FAERS Safety Report 8000755-3 (Version None)
Quarter: 2011Q4

REPORT INFORMATION
  Report Type: 
  Country: None (occurrence: None)
  Receive Date: 20111222
  Receipt Date: 20111219
  Transmission Date: 20120403
  Serious: Yes (Hospitalization)
  Sender: FDA-Public Use
  Company Number: IT-BRISTOL-MYERS SQUIBB COMPANY-16274763

PATIENT
  Age: 73 Year
  Sex: Female

DRUGS (6)
  1. IRBESARTAN AND HYDROCHLOROTHIAZIDE [Concomitant]
     Dosage: 1 DF= 1 UNIT
  2. CARDURA [Concomitant]
     Dosage: 1 DF= 2 UNITS
  3. LASIX [Concomitant]
     Dosage: 1 DF= 2 UNITS
  4. ATENOLOL [Concomitant]
  5. DILTIAZEM HCL [Concomitant]
  6. COUMADIN [Suspect]
     Dosage: 1 DF = 1 UNIT
     Route: 048
     Dates: start: 20110401, end: 20111107

REACTIONS (3)
  - ANAEMIA [None]
  - SUBCUTANEOUS HAEMATOMA [None]
  - INTERNATIONAL NORMALISED RATIO INCREASED [None]
